FAERS Safety Report 5421329-4 (Version None)
Quarter: 2007Q3

REPORT INFORMATION
  Report Type: 
  Country: None (occurrence: None)
  Receive Date: 20070719
  Receipt Date: 20070409
  Transmission Date: 20080115
  Serious: Yes (Life-Threatening)
  Sender: FDA-Public Use
  Company Number: OMPQ-PR-0704S-0195

PATIENT
  Age: 37 Year
  Sex: Male

DRUGS (1)
  1. OMNIPAQUE 140 [Suspect]
     Indication: SMALL INTESTINAL OBSTRUCTION
     Dosage: SINGLE DOSE, P.O.
     Route: 048
     Dates: start: 20070409, end: 20070409

REACTIONS (1)
  - ANAPHYLACTOID REACTION [None]
